FAERS Safety Report 19856547 (Version 8)
Quarter: 2024Q3

REPORT INFORMATION
  Report Type: Spontaneous
  Country: US (occurrence: US)
  Receive Date: 20210920
  Receipt Date: 20240717
  Transmission Date: 20241017
  Serious: Yes (Other)
  Sender: ROCHE
  Company Number: US-ROCHE-2914278

PATIENT
  Age: 36 Year
  Sex: Male

DRUGS (3)
  1. HEMLIBRA [Suspect]
     Active Substance: EMICIZUMAB-KXWH
     Indication: Factor VIII deficiency
     Dosage: STRENGTH: 60MG/0.4ML?DOSE: 1.52ML/228MG
     Route: 058
     Dates: start: 20210723
  2. HEMLIBRA [Suspect]
     Active Substance: EMICIZUMAB-KXWH
     Dosage: FORM STRENGTH : 60MG/0.4ML
     Route: 058
     Dates: start: 20210723
  3. HEMLIBRA [Suspect]
     Active Substance: EMICIZUMAB-KXWH
     Route: 058

REACTIONS (5)
  - Haemorrhage [Recovered/Resolved]
  - Haemorrhage [Unknown]
  - Joint injury [Unknown]
  - Haemorrhage [Unknown]
  - Balance disorder [Unknown]
